FAERS Safety Report 13769895 (Version 1)
Quarter: 2017Q3

REPORT INFORMATION
  Report Type: Report from Study
  Country: EG (occurrence: EG)
  Receive Date: 20170719
  Receipt Date: 20170719
  Transmission Date: 20171127
  Serious: Yes (Hospitalization, Other)
  Sender: FDA-Public Use
  Company Number: EG-NOVOPROD-553580

PATIENT
  Age: 63 Year
  Sex: Female
  Weight: 110 kg

DRUGS (3)
  1. CONCOR [Concomitant]
     Active Substance: BISOPROLOL FUMARATE
     Indication: HYPERTENSION
     Dosage: UNK
     Route: 048
  2. MILGA [Concomitant]
     Indication: VITAMIN SUPPLEMENTATION
     Dosage: TWICE DAILY. STARTED A FEW MONTHS AGO.
     Route: 048
  3. MIXTARD 30 HM PENFILL [Suspect]
     Active Substance: INSULIN HUMAN
     Indication: DIABETES MELLITUS
     Dosage: 80.00 IU, QD
     Route: 058

REACTIONS (3)
  - Diabetic retinopathy [Unknown]
  - Hyperglycaemia [Not Recovered/Not Resolved]
  - Eye haemorrhage [Not Recovered/Not Resolved]
